FAERS Safety Report 20561279 (Version 1)
Quarter: 2022Q1

REPORT INFORMATION
  Report Type: Spontaneous
  Country: US (occurrence: US)
  Receive Date: 20220307
  Receipt Date: 20220307
  Transmission Date: 20220424
  Serious: No
  Sender: FDA-Public Use
  Company Number: US-AMGEN-USASP2022033920

PATIENT
  Age: 74 Year
  Sex: Female

DRUGS (1)
  1. PROLIA [Suspect]
     Active Substance: DENOSUMAB
     Indication: Osteoporosis
     Dosage: UNK, UNK
     Route: 065
     Dates: start: 20211110

REACTIONS (7)
  - Hypersensitivity [Unknown]
  - Groin pain [Recovered/Resolved]
  - Swelling [Unknown]
  - Arthralgia [Unknown]
  - Back pain [Unknown]
  - Erythema [Recovering/Resolving]
  - Musculoskeletal pain [Unknown]

NARRATIVE: CASE EVENT DATE: 20220223
